FAERS Safety Report 6319439-2 (Version None)
Quarter: 2009Q3

REPORT INFORMATION
  Report Type: 
  Country: None (occurrence: None)
  Receive Date: 20090822
  Receipt Date: 20080908
  Transmission Date: 20100115
  Serious: No
  Sender: FDA-Public Use
  Company Number: US-ABBOTT-08P-163-0474762-00

PATIENT
  Sex: Female
  Weight: 68.1 kg

DRUGS (7)
  1. NIASPAN [Suspect]
     Indication: BLOOD CHOLESTEROL
     Route: 048
     Dates: start: 20080825, end: 20080904
  2. ATORVASTATIN CALCIUM [Concomitant]
     Indication: BLOOD CHOLESTEROL
     Route: 048
     Dates: start: 20080515
  3. LOVOXYL [Concomitant]
     Indication: THYROID DISORDER
     Route: 048
     Dates: start: 19780101
  4. ESTRODIAL [Concomitant]
     Indication: HORMONE REPLACEMENT THERAPY
     Route: 048
     Dates: start: 19980101
  5. NORETHISTERONE [Concomitant]
     Indication: DRUG USE FOR UNKNOWN INDICATION
     Route: 048
     Dates: start: 19980101
  6. FOSAMAX [Concomitant]
     Indication: OSTEOPENIA
     Route: 048
     Dates: start: 20040101
  7. VAGO FEN [Concomitant]
     Indication: DRUG USE FOR UNKNOWN INDICATION
     Route: 067
     Dates: start: 19980101

REACTIONS (4)
  - BREAST PAIN [None]
  - CHILLS [None]
  - MUSCULOSKELETAL STIFFNESS [None]
  - RASH [None]
